FAERS Safety Report 6891921-9 (Version None)
Quarter: 2010Q3

REPORT INFORMATION
  Report Type: 
  Country: None (occurrence: None)
  Receive Date: 20100731
  Receipt Date: 20071205
  Transmission Date: 20110219
  Serious: No
  Sender: FDA-Public Use
  Company Number: US-PFIZER INC-2007103137

PATIENT
  Age: 70 Year
  Sex: Female
  Weight: 58.51 kg

DRUGS (1)
  1. CAMPTOSAR [Suspect]
     Indication: COLORECTAL CANCER
     Dates: start: 20071205, end: 20071205

REACTIONS (1)
  - ABDOMINAL PAIN [None]
